FAERS Safety Report 4634781-9 (Version None)
Quarter: 2005Q2

REPORT INFORMATION
  Report Type: 
  Country: None (occurrence: None)
  Receive Date: 20050412
  Receipt Date: 20050412
  Transmission Date: 20051028
  Serious: No
  Sender: FDA-Public Use
  Company Number: None

PATIENT
  Age: 58 Year
  Sex: Female
  Weight: 50.8029 kg

DRUGS (2)
  1. BEXTRA [Suspect]
     Indication: OSTEOARTHRITIS
     Dosage: 1   1 ORAL
     Route: 048
     Dates: start: 20040801, end: 20041115
  2. MOBIC [Suspect]
     Indication: OSTEOARTHRITIS
     Dosage: 1  1 ORAL
     Route: 048
     Dates: start: 20050110, end: 20050209

REACTIONS (2)
  - DRUG HYPERSENSITIVITY [None]
  - RETINAL HAEMORRHAGE [None]
